FAERS Safety Report 5474242-0 (Version None)
Quarter: 2007Q4

REPORT INFORMATION
  Report Type: 
  Country: None (occurrence: None)
  Receive Date: 20071002
  Receipt Date: 20070529
  Transmission Date: 20080405
  Serious: No
  Sender: FDA-Public Use
  Company Number: US-ASTRAZENECA-2007UW13113

PATIENT
  Age: 65 Year
  Sex: Female
  Weight: 81.6 kg

DRUGS (2)
  1. ARIMIDEX [Suspect]
     Indication: BREAST CANCER
     Route: 048
  2. LIPITOR [Concomitant]

REACTIONS (7)
  - ARTHRITIS [None]
  - INSOMNIA [None]
  - MOOD ALTERED [None]
  - MYALGIA [None]
  - PARAESTHESIA [None]
  - TONGUE DRY [None]
  - WEIGHT INCREASED [None]
